FAERS Safety Report 9800420 (Version 1)
Quarter: 2014Q1

REPORT INFORMATION
  Report Type: Spontaneous
  Country: US (occurrence: US)
  Receive Date: 20140107
  Receipt Date: 20140107
  Transmission Date: 20141002
  Serious: No
  Sender: FDA-Public Use
  Company Number: US-009507513-1312USA006632

PATIENT
  Sex: Female

DRUGS (3)
  1. AZASITE [Suspect]
     Indication: BLEPHARITIS
     Dosage: 2 GTT, BID
     Route: 047
     Dates: start: 201310
  2. AZASITE [Suspect]
     Indication: DRY EYE
  3. AZASITE [Suspect]
     Indication: MEIBOMIAN GLAND DYSFUNCTION

REACTIONS (2)
  - Vision blurred [Recovering/Resolving]
  - Drug prescribing error [Unknown]
